FAERS Safety Report 19710025 (Version 2)
Quarter: 2021Q3

REPORT INFORMATION
  Report Type: Report from Study
  Country: US (occurrence: US)
  Receive Date: 20210816
  Receipt Date: 20210924
  Transmission Date: 20211014
  Serious: Yes (Death, Life-Threatening, Hospitalization, Disabling, Other)
  Sender: FDA-Public Use
  Company Number: US-GILEAD-2021-0520462

PATIENT
  Age: 69 Year
  Sex: Male

DRUGS (38)
  1. REMDESIVIR. [Suspect]
     Active Substance: REMDESIVIR
     Indication: COVID-19
     Dosage: UNK, QD
     Route: 042
     Dates: start: 20210217, end: 20210217
  2. GLYCERYL TRINITRATE [Concomitant]
     Active Substance: NITROGLYCERIN
  3. LEVOFLOXACIN. [Concomitant]
     Active Substance: LEVOFLOXACIN
  4. MIDAZOLAM HYDROCHLORIDE. [Concomitant]
     Active Substance: MIDAZOLAM HYDROCHLORIDE
  5. TRAMADOL HCL [Concomitant]
     Active Substance: TRAMADOL HYDROCHLORIDE
  6. TAMSULOSIN HYDROCHLORIDE. [Concomitant]
     Active Substance: TAMSULOSIN HYDROCHLORIDE
  7. BLINDED ABATACEPT [Suspect]
     Active Substance: ABATACEPT
     Indication: COVID-19
     Dosage: UNK, ONCE
     Route: 042
     Dates: start: 20210217, end: 20210217
  8. ACETYLSALICYLIC ACID [Concomitant]
     Active Substance: ASPIRIN
  9. INSULIN GLARGINE [Concomitant]
     Active Substance: INSULIN GLARGINE
  10. IPRATROPIUM BROMIDE AND SALBUTAMOL SULFATE [Concomitant]
     Active Substance: ALBUTEROL SULFATE\IPRATROPIUM BROMIDE
  11. MORPHINE SULFATE. [Concomitant]
     Active Substance: MORPHINE SULFATE
  12. CLOPIDOGREL [Concomitant]
     Active Substance: CLOPIDOGREL BISULFATE
  13. FUROSEMIDE. [Concomitant]
     Active Substance: FUROSEMIDE
  14. HEPARIN SODIUM. [Concomitant]
     Active Substance: HEPARIN SODIUM
  15. PANTOPRAZOLE SODIUM SESQUIHYDRATE [Concomitant]
     Active Substance: PANTOPRAZOLE SODIUM
  16. PLACEBO [Suspect]
     Active Substance: UNSPECIFIED INGREDIENT
     Indication: COVID-19
     Dosage: UNK, ONCE
     Route: 042
     Dates: start: 20210217, end: 20210217
  17. CEFAZOLIN SODIUM. [Concomitant]
     Active Substance: CEFAZOLIN SODIUM
  18. DEXAMETHASONE. [Concomitant]
     Active Substance: DEXAMETHASONE
  19. INSULIN LISPRO [Concomitant]
     Active Substance: INSULIN LISPRO
  20. LACTOBACILLUS ACIDOPHILUS [Concomitant]
     Active Substance: LACTOBACILLUS ACIDOPHILUS
  21. PROPOFOL. [Concomitant]
     Active Substance: PROPOFOL
  22. TAMSULOSIN [Concomitant]
     Active Substance: TAMSULOSIN
  23. FENTANYL CITRATE. [Concomitant]
     Active Substance: FENTANYL CITRATE
  24. MACROGOL 3350 [Concomitant]
     Active Substance: POLYETHYLENE GLYCOL 3350
  25. CARVEDILOL. [Concomitant]
     Active Substance: CARVEDILOL
  26. CEFTAROLINE FOSAMIL [Concomitant]
     Active Substance: CEFTAROLINE FOSAMIL
  27. ENOXAPARIN [Concomitant]
     Active Substance: ENOXAPARIN
  28. GABAPENTIN. [Concomitant]
     Active Substance: GABAPENTIN
  29. LORAZEPAM. [Concomitant]
     Active Substance: LORAZEPAM
  30. NOREPINEPHRINE. [Concomitant]
     Active Substance: NOREPINEPHRINE
  31. PARACETAMOL [Concomitant]
     Active Substance: ACETAMINOPHEN
  32. NOREPINEPHRINE BITARTRATE. [Concomitant]
     Active Substance: NOREPINEPHRINE BITARTRATE
  33. APIXABAN [Concomitant]
     Active Substance: APIXABAN
  34. BUMETANIDE. [Concomitant]
     Active Substance: BUMETANIDE
  35. GUAIFENESIN. [Concomitant]
     Active Substance: GUAIFENESIN
  36. NALOXONE [Concomitant]
     Active Substance: NALOXONE
  37. ATORVASTATIN CALCIUM. [Concomitant]
     Active Substance: ATORVASTATIN CALCIUM
  38. SALBUTAMOL [Concomitant]
     Active Substance: ALBUTEROL

REACTIONS (3)
  - Staphylococcal sepsis [Not Recovered/Not Resolved]
  - Acute kidney injury [Not Recovered/Not Resolved]
  - Respiratory failure [Fatal]

NARRATIVE: CASE EVENT DATE: 20210225
